FAERS Safety Report 7807688-3 (Version None)
Quarter: 2011Q4

REPORT INFORMATION
  Report Type: 
  Country: None (occurrence: None)
  Receive Date: 20111011
  Receipt Date: 20110929
  Transmission Date: 20120403
  Serious: Yes (Hospitalization)
  Sender: FDA-Public Use
  Company Number: US-ACTELION-A-US2011-47879

PATIENT

DRUGS (7)
  1. EPOPROSTENOL SODIUM [Suspect]
     Indication: PULMONARY ARTERIAL HYPERTENSION
     Dosage: 19 NG/KG, PER MIN
     Route: 042
     Dates: start: 20110124, end: 20110414
  2. TRACLEER [Suspect]
     Dosage: 62.5 MG, BID
     Route: 048
  3. EPOPROSTENOL SODIUM [Suspect]
     Dosage: 15 NG/KG, PER MIN
     Route: 042
     Dates: start: 20110420
  4. EPOPROSTENOL SODIUM [Suspect]
     Dosage: 23 NG/KG, PER MIN
     Route: 042
  5. TRACLEER [Suspect]
     Indication: PULMONARY ARTERIAL HYPERTENSION
     Dosage: 125 MG, BID
     Route: 048
     Dates: start: 20060101
  6. SILDENAFIL CITRATE [Concomitant]
  7. TRACLEER [Suspect]
     Dosage: UNK
     Route: 048
     Dates: start: 20020115

REACTIONS (5)
  - DIARRHOEA [None]
  - VOMITING [None]
  - NAUSEA [None]
  - BLOOD POTASSIUM DECREASED [None]
  - FOOD POISONING [None]
